FAERS Safety Report 24254059 (Version 2)
Quarter: 2024Q3

REPORT INFORMATION
  Report Type: Spontaneous
  Country: TR (occurrence: TR)
  Receive Date: 20240827
  Receipt Date: 20240917
  Transmission Date: 20241016
  Serious: No
  Sender: TOLMAR
  Company Number: TR-TOLMAR, INC.-24TR051666

PATIENT
  Age: 42 Year
  Sex: Female

DRUGS (2)
  1. ELIGARD [Suspect]
     Active Substance: LEUPROLIDE ACETATE
     Indication: Breast cancer
     Dosage: 22.5 MILLIGRAM
  2. LEUPROLIDE ACETATE [Concomitant]
     Active Substance: ISOPROPYL ALCOHOL\LEUPROLIDE ACETATE
     Indication: Product used for unknown indication
     Dosage: 11.25 MILLIGRAM

REACTIONS (4)
  - Off label use [Unknown]
  - Intercepted product preparation error [Unknown]
  - Device leakage [Unknown]
  - Liquid product physical issue [Unknown]
